FAERS Safety Report 16423427 (Version 1)
Quarter: 2019Q2

REPORT INFORMATION
  Report Type: Spontaneous
  Country: PH (occurrence: PH)
  Receive Date: 20190612
  Receipt Date: 20190612
  Transmission Date: 20190711
  Serious: Yes (Other)
  Sender: FDA-Public Use
  Company Number: PHHY2019PH106982

PATIENT
  Age: 75 Year
  Sex: Female

DRUGS (3)
  1. NEXIUM [Concomitant]
     Active Substance: ESOMEPRAZOLE MAGNESIUM
     Indication: PRODUCT USED FOR UNKNOWN INDICATION
     Dosage: 1 DF, QD (OD PRE-BREAKFAST X 1 WEEK)
     Route: 065
  2. KRYXANA [Suspect]
     Active Substance: RIBOCICLIB
     Indication: BREAST CANCER METASTATIC
     Dosage: 3 DF, QD (ONE CYCLE WAS 3 WEEKS ON AND 1 WEEK OFF)
     Route: 048
  3. KRYXANA [Suspect]
     Active Substance: RIBOCICLIB
     Dosage: 3 DF, QD (ONE CYCLE WAS 3 WEEKS ON AND 1 WEEK OFF)
     Route: 048

REACTIONS (6)
  - Pruritus [Recovering/Resolving]
  - Rash macular [Recovering/Resolving]
  - Palmar-plantar erythrodysaesthesia syndrome [Recovering/Resolving]
  - Oedema peripheral [Recovering/Resolving]
  - Drug hypersensitivity [Recovering/Resolving]
  - Rash maculo-papular [Recovering/Resolving]
